FAERS Safety Report 24058641 (Version 1)
Quarter: 2024Q3

REPORT INFORMATION
  Report Type: Spontaneous
  Country: US (occurrence: US)
  Receive Date: 20240708
  Receipt Date: 20240708
  Transmission Date: 20241017
  Serious: No
  Sender: SANOFI AVENTIS
  Company Number: US-SA-SAC20240701000325

PATIENT
  Age: 30 Year
  Sex: Male

DRUGS (4)
  1. DUPIXENT [Suspect]
     Active Substance: DUPILUMAB
     Indication: Dermatitis atopic
     Dosage: 300 MG, QOW
     Route: 058
  2. AQUAPHOR BABY [Concomitant]
     Indication: Dry skin
     Dosage: DAILY
  3. AVEENO BABY [AVENA SATIVA] [Concomitant]
     Indication: Dry skin
  4. VALACYCLOVIR [Concomitant]
     Active Substance: VALACYCLOVIR HYDROCHLORIDE
     Indication: Dermatitis atopic

REACTIONS (3)
  - Rash macular [Unknown]
  - Pruritus [Unknown]
  - Therapeutic response shortened [Unknown]
